FAERS Safety Report 7095811-0 (Version None)
Quarter: 2010Q4

REPORT INFORMATION
  Report Type: 
  Country: None (occurrence: None)
  Receive Date: 20101109
  Receipt Date: 20101109
  Transmission Date: 20110411
  Serious: Yes (Hospitalization)
  Sender: FDA-Public Use
  Company Number: None

PATIENT
  Sex: Male
  Weight: 99 kg

DRUGS (2)
  1. CISPLATIN [Suspect]
     Dosage: 430 MG
  2. CAMPTOSAR [Suspect]
     Dosage: 932 MG

REACTIONS (2)
  - NAUSEA [None]
  - VOMITING [None]
